FAERS Safety Report 11135033 (Version 2)
Quarter: 2015Q3

REPORT INFORMATION
  Report Type: Spontaneous
  Country: RU (occurrence: RU)
  Receive Date: 20150525
  Receipt Date: 20150701
  Transmission Date: 20151125
  Serious: Yes (Hospitalization, Other)
  Sender: FDA-Public Use
  Company Number: RU-SUN PHARMACEUTICAL INDUSTRIES LTD-2015R1-97536

PATIENT
  Sex: Female

DRUGS (1)
  1. FUROSEMIDE. [Suspect]
     Active Substance: FUROSEMIDE
     Indication: FLUID RETENTION
     Dosage: 40MG UPTO 2-3 TIMES PER WEEK
     Route: 065

REACTIONS (11)
  - Tubulointerstitial nephritis [Recovered/Resolved]
  - Autoimmune thyroiditis [Recovered/Resolved]
  - Gastric polyps [Unknown]
  - Iron deficiency anaemia [Unknown]
  - Drug abuse [Unknown]
  - Acute prerenal failure [Recovered/Resolved]
  - Gastroenteritis [Recovered/Resolved]
  - Metabolic acidosis [Recovered/Resolved]
  - Body temperature increased [Recovered/Resolved]
  - Vertigo [Unknown]
  - Gastroduodenitis [Recovered/Resolved]

NARRATIVE: CASE EVENT DATE: 201311
